FAERS Safety Report 7889686-7 (Version None)
Quarter: 2011Q4

REPORT INFORMATION
  Report Type: 
  Country: None (occurrence: None)
  Receive Date: 20111103
  Receipt Date: 20111028
  Transmission Date: 20120403
  Serious: Yes (Other)
  Sender: FDA-Public Use
  Company Number: US-ABBOTT-11P-163-0870083-00

PATIENT
  Sex: Female
  Weight: 107.6 kg

DRUGS (14)
  1. AZOR [Concomitant]
     Indication: HYPERTENSION
  2. LIPITOR [Concomitant]
     Indication: BLOOD CHOLESTEROL INCREASED
  3. TREXIMET [Concomitant]
     Indication: MIGRAINE
  4. METFORMIN HCL [Concomitant]
     Indication: DIABETES MELLITUS
  5. VITAMIN D [Concomitant]
     Indication: VITAMIN SUPPLEMENTATION
  6. HUMIRA [Suspect]
     Indication: SARCOIDOSIS
     Dates: start: 20080101
  7. LEXAPRO [Concomitant]
     Indication: MIGRAINE
  8. LYRICA [Concomitant]
     Indication: SARCOIDOSIS
  9. LEXAPRO [Concomitant]
     Indication: ANXIETY
  10. HUMIRA [Suspect]
     Indication: RHEUMATOID ARTHRITIS
  11. VICTOZA [Concomitant]
     Indication: DIABETES MELLITUS
  12. CALCIUM [Concomitant]
     Indication: MINERAL SUPPLEMENTATION
  13. PREDNISONE [Concomitant]
     Indication: RHEUMATOID ARTHRITIS
  14. PREDNISONE [Concomitant]
     Indication: SARCOIDOSIS

REACTIONS (7)
  - JOINT INJURY [None]
  - OFF LABEL USE [None]
  - BENIGN BREAST NEOPLASM [None]
  - BENIGN NEOPLASM OF THYROID GLAND [None]
  - ARTHRALGIA [None]
  - PAIN [None]
  - FALL [None]
